FAERS Safety Report 4700243-3 (Version None)
Quarter: 2005Q2

REPORT INFORMATION
  Report Type: 
  Country: None (occurrence: None)
  Receive Date: 20050627
  Receipt Date: 20050617
  Transmission Date: 20051028
  Serious: Yes (Other)
  Sender: FDA-Public Use
  Company Number: US-JNJFOC-20050605329

PATIENT
  Sex: Male

DRUGS (3)
  1. CONCERTA [Suspect]
     Route: 049
  2. CONCERTA [Suspect]
     Indication: DEPRESSION
     Route: 049
  3. CONCERTA [Suspect]
     Route: 049

REACTIONS (9)
  - ABNORMAL BEHAVIOUR [None]
  - AGGRESSION [None]
  - DIARRHOEA [None]
  - DRUG ADMINISTRATION ERROR [None]
  - HALLUCINATION, AUDITORY [None]
  - HEADACHE [None]
  - OFF LABEL USE [None]
  - PERSONALITY CHANGE [None]
  - STOMACH DISCOMFORT [None]
